FAERS Safety Report 7671835-7 (Version None)
Quarter: 2011Q3

REPORT INFORMATION
  Report Type: 
  Country: None (occurrence: None)
  Receive Date: 20110726
  Receipt Date: 20110712
  Transmission Date: 20111222
  Serious: Yes (Life-Threatening, Hospitalization)
  Sender: FDA-Public Use
  Company Number: US-145215

PATIENT
  Sex: Female
  Weight: 110 kg

DRUGS (8)
  1. CELEBREX [Concomitant]
  2. CELEXA [Concomitant]
  3. WELLBUTRIN [Concomitant]
  4. NUVARING [Concomitant]
  5. THERAFLU [Concomitant]
  6. WINRHO SDF LIQUID [Suspect]
     Indication: IDIOPATHIC THROMBOCYTOPENIC PURPURA
     Dosage: 45.45 UG/KG TOTAL INTRAVENOUS
     Route: 042
     Dates: start: 20110628
  7. WINRHO SDF LIQUID [Suspect]
  8. AZITHROMYCIN [Concomitant]

REACTIONS (35)
  - RESTLESSNESS [None]
  - CEREBRAL VENOUS THROMBOSIS [None]
  - TREMOR [None]
  - CHILLS [None]
  - PYREXIA [None]
  - RESPIRATORY RATE INCREASED [None]
  - ELECTROENCEPHALOGRAM ABNORMAL [None]
  - EXTRAVASCULAR HAEMOLYSIS [None]
  - HAEMOGLOBIN DECREASED [None]
  - VASCULITIS [None]
  - WHITE BLOOD CELL COUNT INCREASED [None]
  - BLOOD LACTATE DEHYDROGENASE INCREASED [None]
  - ALANINE AMINOTRANSFERASE INCREASED [None]
  - TRANSVERSE SINUS THROMBOSIS [None]
  - ASTHENIA [None]
  - RENAL FAILURE [None]
  - OBSTRUCTION [None]
  - GRAND MAL CONVULSION [None]
  - ASPARTATE AMINOTRANSFERASE INCREASED [None]
  - ENCEPHALOPATHY [None]
  - DEPRESSED LEVEL OF CONSCIOUSNESS [None]
  - COMA [None]
  - HAEMODYNAMIC INSTABILITY [None]
  - PNEUMONIA [None]
  - MENTAL IMPAIRMENT [None]
  - LETHARGY [None]
  - BLOOD SODIUM DECREASED [None]
  - SINUS TACHYCARDIA [None]
  - ACUTE RESPIRATORY FAILURE [None]
  - AGGRESSION [None]
  - CONFUSIONAL STATE [None]
  - HYPOTENSION [None]
  - ACTIVATED PARTIAL THROMBOPLASTIN TIME PROLONGED [None]
  - BLOOD GLUCOSE INCREASED [None]
  - BLOOD ALKALINE PHOSPHATASE INCREASED [None]
